FAERS Safety Report 8361883-6 (Version None)
Quarter: 2012Q2

REPORT INFORMATION
  Report Type: 
  Country: None (occurrence: None)
  Receive Date: 20120515
  Receipt Date: 20120503
  Transmission Date: 20120825
  Serious: Yes (Death, Hospitalization)
  Sender: FDA-Public Use
  Company Number: US-CELGENEUS-163-50794-12043219

PATIENT
  Age: 87 Year
  Sex: Female
  Weight: 60.1 kg

DRUGS (4)
  1. GEMTUZUMAB OZOGAMICIN [Suspect]
     Dosage: 3 MILLIGRAM/SQ. METER
     Route: 041
     Dates: start: 20120306
  2. HYDROXYUREA [Concomitant]
     Dosage: 1500 MILLIGRAM
     Route: 048
     Dates: start: 20120306
  3. VIDAZA [Suspect]
     Dosage: 75 MILLIGRAM/SQ. METER
     Route: 058
     Dates: start: 20120306
  4. VIDAZA [Suspect]
     Dosage: 75 MILLIGRAM/SQ. METER
     Route: 058
     Dates: start: 20120321, end: 20120322

REACTIONS (1)
  - RESPIRATORY FAILURE [None]
